FAERS Safety Report 9626159 (Version 2)
Quarter: 2014Q1

REPORT INFORMATION
  Report Type: Spontaneous
  Country: FR (occurrence: FR)
  Receive Date: 20131016
  Receipt Date: 20140214
  Transmission Date: 20141002
  Serious: Yes (Death, Life-Threatening, Hospitalization)
  Sender: FDA-Public Use
  Company Number: FR-UCBSA-100212

PATIENT
  Age: 58 Year
  Sex: Female

DRUGS (19)
  1. KEPPRA [Suspect]
     Route: 048
     Dates: start: 20130411, end: 20130920
  2. SEROPLEX [Suspect]
     Route: 048
     Dates: start: 20130815, end: 20130819
  3. VFEND [Suspect]
     Route: 048
     Dates: start: 20130826, end: 201309
  4. VFEND [Suspect]
     Route: 048
     Dates: end: 20130724
  5. NOXAFIL [Concomitant]
     Dates: start: 20130724, end: 2013
  6. NOXAFIL [Concomitant]
     Dates: start: 20130926
  7. ITRACONAZOLE [Concomitant]
     Dates: start: 201309, end: 201309
  8. ITRACONAZOLE [Concomitant]
     Dates: start: 20130926
  9. CYCLOSPORINE [Concomitant]
     Dates: start: 201301
  10. CELLCEPT [Concomitant]
     Dates: start: 201301
  11. ZOPHREN [Concomitant]
     Indication: NAUSEA
     Dates: start: 201304
  12. AMLOR [Concomitant]
     Dates: start: 20130903
  13. METHYLPREDNISOLONE [Concomitant]
     Dates: start: 20130819
  14. DOMPERIDONE [Concomitant]
     Dates: start: 20130906
  15. ESOMEPRAZOLE [Concomitant]
     Dates: start: 20130906, end: 20130924
  16. EFFEXOR [Concomitant]
     Dosage: UNKNOWN DOSE
  17. VIMPAT [Concomitant]
     Dosage: UNKNOWN DOSE
  18. URBANYL [Concomitant]
     Dosage: UNKNOWN DOSE
  19. OGASTORO [Concomitant]
     Dosage: UNKNOWN DOSE

REACTIONS (2)
  - Death [Fatal]
  - Thrombocytopenia [Recovered/Resolved]
